FAERS Safety Report 12832438 (Version 1)
Quarter: 2016Q4

REPORT INFORMATION
  Report Type: Spontaneous
  Country: US (occurrence: US)
  Receive Date: 20161010
  Receipt Date: 20161010
  Transmission Date: 20170207
  Serious: No
  Sender: FDA-Public Use
  Company Number: US-JAZZ-2016-US-013305

PATIENT
  Sex: Female

DRUGS (14)
  1. DEPO-PROVERA [Concomitant]
     Active Substance: MEDROXYPROGESTERONE ACETATE
  2. VITAMIN D [Concomitant]
     Active Substance: CHOLECALCIFEROL
  3. IRON [Concomitant]
     Active Substance: IRON
  4. CHLORELLA [Concomitant]
  5. ZOLPIDEM TARTRATE. [Concomitant]
     Active Substance: ZOLPIDEM TARTRATE
  6. XYREM [Suspect]
     Active Substance: SODIUM OXYBATE
     Indication: NARCOLEPSY
     Dosage: 1.75 G, BID
     Route: 048
     Dates: start: 201401, end: 201403
  7. FISH OIL OMEGA 3 [Concomitant]
  8. ANTIVIRALS [Concomitant]
     Active Substance: UNSPECIFIED INGREDIENT
  9. XYREM [Suspect]
     Active Substance: SODIUM OXYBATE
     Indication: CATAPLEXY
     Dosage: DOSE ADJUSTMENTS
     Route: 048
     Dates: start: 201403, end: 201601
  10. XYREM [Suspect]
     Active Substance: SODIUM OXYBATE
     Dosage: 3.75 G, BID
     Route: 048
     Dates: start: 201601
  11. FOLIC ACID. [Concomitant]
     Active Substance: FOLIC ACID
  12. ALFALFA [Concomitant]
     Active Substance: ALFALFA
  13. ADDERALL [Concomitant]
     Active Substance: AMPHETAMINE ASPARTATE\AMPHETAMINE SULFATE\DEXTROAMPHETAMINE SACCHARATE\DEXTROAMPHETAMINE SULFATE
  14. CALCIUM MAGNESIUM + VITAMIN D [Concomitant]

REACTIONS (3)
  - Intervertebral disc protrusion [Unknown]
  - Blood pressure increased [Unknown]
  - Peripheral swelling [Unknown]

NARRATIVE: CASE EVENT DATE: 2016
